FAERS Safety Report 16953159 (Version 1)
Quarter: 2019Q4

REPORT INFORMATION
  Report Type: Report from Study
  Country: US (occurrence: US)
  Receive Date: 20191023
  Receipt Date: 20191023
  Transmission Date: 20200122
  Serious: Yes (Hospitalization)
  Sender: FDA-Public Use
  Company Number: US-EISAI MEDICAL RESEARCH-EC-2019-061214

PATIENT
  Sex: Male
  Weight: 83 kg

DRUGS (15)
  1. SERTRALINE HCL [Concomitant]
     Active Substance: SERTRALINE HYDROCHLORIDE
  2. LOPERAMIDE [Concomitant]
     Active Substance: LOPERAMIDE
  3. VITAMIN B6 [Concomitant]
     Active Substance: PYRIDOXINE HYDROCHLORIDE
  4. LASIX [Concomitant]
     Active Substance: FUROSEMIDE
  5. LOSARTAN POTASSIUM. [Concomitant]
     Active Substance: LOSARTAN POTASSIUM
  6. LORAZEPAM. [Concomitant]
     Active Substance: LORAZEPAM
  7. LENVIMA [Suspect]
     Active Substance: LENVATINIB
     Indication: HEPATOCELLULAR CARCINOMA
     Route: 048
     Dates: start: 20190815, end: 2019
  8. CARVEDILOL. [Concomitant]
     Active Substance: CARVEDILOL
  9. LENVIMA [Suspect]
     Active Substance: LENVATINIB
     Route: 048
     Dates: start: 2019, end: 201910
  10. OXYCODONE [Concomitant]
     Active Substance: OXYCODONE
  11. DIPHENOXYLATE-ATROPINE [Concomitant]
     Active Substance: ATROPINE\DIPHENOXYLATE
  12. COMPAZINE [Concomitant]
     Active Substance: PROCHLORPERAZINE MALEATE
  13. ISOSORBIDE DINITRATE. [Concomitant]
     Active Substance: ISOSORBIDE DINITRATE
  14. VITAMIN D3 [Concomitant]
     Active Substance: CHOLECALCIFEROL
  15. NITROGLYCERIN. [Concomitant]
     Active Substance: NITROGLYCERIN

REACTIONS (10)
  - Gastroenteritis viral [Recovered/Resolved]
  - Swelling [Unknown]
  - Dehydration [Unknown]
  - Pleural effusion [Unknown]
  - Diarrhoea [Unknown]
  - Liver disorder [Unknown]
  - Renal disorder [Unknown]
  - Blood pressure increased [Unknown]
  - Vomiting [Recovered/Resolved]
  - Functional gastrointestinal disorder [Unknown]

NARRATIVE: CASE EVENT DATE: 2019
